FAERS Safety Report 17602436 (Version 1)
Quarter: 2020Q1

REPORT INFORMATION
  Report Type: Spontaneous
  Country: CA (occurrence: CA)
  Receive Date: 20200330
  Receipt Date: 20200330
  Transmission Date: 20200409
  Serious: Yes (Hospitalization)
  Sender: FDA-Public Use
  Company Number: CA-TEVA-2020-CA-1216392

PATIENT
  Age: 27 Year
  Sex: Female

DRUGS (14)
  1. PHENYTOIN. [Suspect]
     Active Substance: PHENYTOIN
     Indication: GENERALISED TONIC-CLONIC SEIZURE
     Route: 065
  2. LORAZEPAM. [Suspect]
     Active Substance: LORAZEPAM
     Indication: GENERALISED TONIC-CLONIC SEIZURE
     Route: 065
  3. CEFTRIAXONE. [Concomitant]
     Active Substance: CEFTRIAXONE
  4. LEVETIRACETAM. [Suspect]
     Active Substance: LEVETIRACETAM
     Indication: GENERALISED TONIC-CLONIC SEIZURE
     Route: 065
  5. TOPIRAMATE. [Suspect]
     Active Substance: TOPIRAMATE
     Indication: GENERALISED TONIC-CLONIC SEIZURE
     Route: 065
  6. PENTOBARBITAL. [Suspect]
     Active Substance: PENTOBARBITAL
     Indication: GENERALISED TONIC-CLONIC SEIZURE
     Route: 041
  7. ACYCLOVIR. [Concomitant]
     Active Substance: ACYCLOVIR
  8. METHYLPREDNISOLONE. [Concomitant]
     Active Substance: METHYLPREDNISOLONE
  9. VANCOMYCIN [Concomitant]
     Active Substance: VANCOMYCIN
  10. CARBAMAZEPINE. [Suspect]
     Active Substance: CARBAMAZEPINE
     Indication: GENERALISED TONIC-CLONIC SEIZURE
     Route: 065
  11. PROPOFOL. [Concomitant]
     Active Substance: PROPOFOL
  12. PENTOBARBITAL. [Suspect]
     Active Substance: PENTOBARBITAL
     Route: 065
  13. VIMPAT [Suspect]
     Active Substance: LACOSAMIDE
     Indication: GENERALISED TONIC-CLONIC SEIZURE
     Route: 065
  14. MIDAZOLAM. [Suspect]
     Active Substance: MIDAZOLAM
     Indication: GENERALISED TONIC-CLONIC SEIZURE
     Route: 041

REACTIONS (10)
  - CSF oligoclonal band present [Unknown]
  - Drug ineffective [Unknown]
  - Rash [Unknown]
  - Status epilepticus [Unknown]
  - Partial seizures [Unknown]
  - Seizure [Unknown]
  - Drug hypersensitivity [Unknown]
  - Pleocytosis [Unknown]
  - Antinuclear antibody positive [Unknown]
  - Encephalitis [Unknown]
